FAERS Safety Report 6336138-1 (Version None)
Quarter: 2009Q3

REPORT INFORMATION
  Report Type: 
  Country: None (occurrence: None)
  Receive Date: 20090828
  Receipt Date: 20090828
  Transmission Date: 20100115
  Serious: Yes (Hospitalization, Other)
  Sender: FDA-Public Use
  Company Number: None

PATIENT
  Age: 34 Year
  Sex: Male

DRUGS (1)
  1. CIPROFLAXACIN [Suspect]
     Indication: SINUSITIS
     Dosage: 400 MG TWICW DAILY ORAL
     Route: 048

REACTIONS (3)
  - ABDOMINAL PAIN [None]
  - HAEMATOCHEZIA [None]
  - RECTAL HAEMORRHAGE [None]
